FAERS Safety Report 8026345-4 (Version None)
Quarter: 2012Q1

REPORT INFORMATION
  Report Type: 
  Country: None (occurrence: None)
  Receive Date: 20120105
  Receipt Date: 20111215
  Transmission Date: 20120608
  Serious: No
  Sender: FDA-Public Use
  Company Number: US-ABBOTT-11P-163-0884559-00

PATIENT
  Age: 34 Year
  Sex: Female

DRUGS (2)
  1. METFORMIN HCL [Concomitant]
     Indication: MENSTRUAL DISORDER
  2. SYNTHROID [Suspect]
     Indication: HYPOTHYROIDISM
     Dates: start: 20100101

REACTIONS (1)
  - GASTROOESOPHAGEAL REFLUX DISEASE [None]
